FAERS Safety Report 16287243 (Version 1)
Quarter: 2019Q2

REPORT INFORMATION
  Report Type: Spontaneous
  Country: US (occurrence: US)
  Receive Date: 20190508
  Receipt Date: 20190508
  Transmission Date: 20190711
  Serious: Yes (Disabling, Other)
  Sender: FDA-Public Use
  Company Number: US-MYLANLABS-2019M1041826

PATIENT
  Sex: Male
  Weight: 107 kg

DRUGS (2)
  1. FENTANYL TRANSDERMAL SYSTEM [Suspect]
     Active Substance: FENTANYL
     Indication: SPONDYLOLISTHESIS
     Dosage: UNK
  2. FENTANYL TRANSDERMAL SYSTEM [Suspect]
     Active Substance: FENTANYL
     Indication: OSTEOMYELITIS

REACTIONS (6)
  - Wheelchair user [Unknown]
  - Apparent death [Unknown]
  - Vomiting [Unknown]
  - Aphasia [Unknown]
  - Eye movement disorder [Unknown]
  - Aspiration [Unknown]
